FAERS Safety Report 15871920 (Version 1)
Quarter: 2019Q1

REPORT INFORMATION
  Report Type: Spontaneous
  Country: US (occurrence: US)
  Receive Date: 20190126
  Receipt Date: 20190126
  Transmission Date: 20190417
  Serious: No
  Sender: FDA-Public Use
  Company Number: US-ACORDA-ACO_147130_2018

PATIENT
  Sex: Female
  Weight: 71.2 kg

DRUGS (2)
  1. AMPYRA [Suspect]
     Active Substance: DALFAMPRIDINE
     Indication: GAIT DISTURBANCE
     Dosage: 10 MG, BID
     Route: 048
  2. MEDICATION FOR HIGH BLOOD PRESSURE AND HIGH CHOLESTEROL [Concomitant]

REACTIONS (3)
  - Product dose omission [Unknown]
  - Hypokinesia [Unknown]
  - Memory impairment [Unknown]
